FAERS Safety Report 12154220 (Version 1)
Quarter: 2016Q1

REPORT INFORMATION
  Report Type: Spontaneous
  Country: US (occurrence: None)
  Receive Date: 20160304
  Receipt Date: 20160304
  Transmission Date: 20160526
  Serious: Yes (Other)
  Sender: FDA-Public Use
  Company Number: None

PATIENT
  Age: 45 Year
  Sex: Female
  Weight: 54.43 kg

DRUGS (2)
  1. LEVONORGESTREL ETHINYL ESTRADIOL 0.15MG 0.03MG LUPIN [Suspect]
     Active Substance: ETHINYL ESTRADIOL\LEVONORGESTREL
     Indication: CONTRACEPTION
     Dosage: 1 PILL ONCE DAILY TAKEN BY MOUTH
     Route: 048
     Dates: start: 20141201, end: 20160301
  2. MODAFINIL. [Concomitant]
     Active Substance: MODAFINIL

REACTIONS (3)
  - Product substitution issue [None]
  - Breast swelling [None]
  - Mood altered [None]

NARRATIVE: CASE EVENT DATE: 20160303
